FAERS Safety Report 9304986 (Version 2)
Quarter: 2013Q3

REPORT INFORMATION
  Report Type: Spontaneous
  Country: CO (occurrence: CO)
  Receive Date: 20130523
  Receipt Date: 20130816
  Transmission Date: 20140515
  Serious: Yes (Hospitalization, Other)
  Sender: FDA-Public Use
  Company Number: CO-AMGEN-COLSP2013035632

PATIENT
  Age: 59 Year
  Sex: Female

DRUGS (7)
  1. ENBREL [Suspect]
     Indication: RHEUMATOID ARTHRITIS
     Dosage: 50 MG, WEEKLY
     Route: 058
     Dates: start: 2009
  2. METHOTREXATE [Concomitant]
     Indication: RHEUMATOID ARTHRITIS
     Dosage: 25 MG, WEEKLY
     Route: 030
     Dates: start: 2009
  3. METHOTREXATE [Concomitant]
     Dosage: 5 MG, WEEKLY
     Route: 030
     Dates: start: 2009
  4. PREDNISOLON                        /00016201/ [Concomitant]
     Indication: RHEUMATOID ARTHRITIS
     Dosage: ALTERNATE DAY
     Route: 048
     Dates: start: 2006, end: 2012
  5. DICLOFENAC [Concomitant]
     Indication: PAIN
     Dosage: 100 MG, 1X/DAY
     Route: 048
     Dates: start: 2010
  6. TRAMADOL [Concomitant]
     Indication: PAIN
     Dosage: 20 DROPS, 1X/DAY
     Route: 048
     Dates: start: 201302
  7. TRAMADOL [Concomitant]
     Dosage: 10 DROPS, 1X/DAY
     Route: 048
     Dates: start: 201302

REACTIONS (7)
  - Blood glucose increased [Not Recovered/Not Resolved]
  - Diabetes mellitus [Not Recovered/Not Resolved]
  - Oral pain [Not Recovered/Not Resolved]
  - Muscular weakness [Not Recovered/Not Resolved]
  - Gait disturbance [Not Recovered/Not Resolved]
  - Arthropathy [Unknown]
  - Pneumonia [Not Recovered/Not Resolved]
